FAERS Safety Report 6277914-3 (Version None)
Quarter: 2009Q3

REPORT INFORMATION
  Report Type: 
  Country: None (occurrence: None)
  Receive Date: 20090722
  Receipt Date: 20090708
  Transmission Date: 20100115
  Serious: Yes (Death, Hospitalization, Other)
  Sender: FDA-Public Use
  Company Number: PL-MEDIMMUNE-MEDI-0008441

PATIENT
  Sex: Male
  Weight: 4.6 kg

DRUGS (2)
  1. SYNAGIS [Suspect]
     Indication: BRONCHOPULMONARY DYSPLASIA
     Route: 030
     Dates: start: 20081218, end: 20081218
  2. SYNAGIS [Suspect]
     Dates: start: 20090119, end: 20090216

REACTIONS (17)
  - ANXIETY [None]
  - CAPILLARY DISORDER [None]
  - COLITIS ULCERATIVE [None]
  - CONDITION AGGRAVATED [None]
  - GENERAL PHYSICAL HEALTH DETERIORATION [None]
  - HYPERTONIA [None]
  - LOWER RESPIRATORY TRACT INFECTION [None]
  - MALNUTRITION [None]
  - MULTI-ORGAN FAILURE [None]
  - NECROTISING COLITIS [None]
  - PNEUMONIA KLEBSIELLA [None]
  - PROTEIN URINE PRESENT [None]
  - PSEUDOMONAS INFECTION [None]
  - RESPIRATORY FAILURE [None]
  - RETINOPATHY [None]
  - SHOCK [None]
  - STAPHYLOCOCCAL INFECTION [None]
